FAERS Safety Report 22531486 (Version 1)
Quarter: 2023Q2

REPORT INFORMATION
  Report Type: Spontaneous
  Country: US (occurrence: None)
  Receive Date: 20230606
  Receipt Date: 20230606
  Transmission Date: 20230722
  Serious: Yes (Other)
  Sender: FDA-Public Use
  Company Number: None

PATIENT
  Age: 48 Year
  Sex: Female
  Weight: 77.4 kg

DRUGS (2)
  1. WEGOVY [Suspect]
     Active Substance: SEMAGLUTIDE
     Indication: Obesity
     Dosage: OTHER FREQUENCY : WEEKLY;?
     Route: 058
     Dates: start: 20221017
  2. CRESTOR [Concomitant]
     Active Substance: ROSUVASTATIN CALCIUM
     Dates: start: 20221017

REACTIONS (6)
  - Allodynia [None]
  - Arthralgia [None]
  - Arthralgia [None]
  - Peripheral coldness [None]
  - Skin burning sensation [None]
  - Hyperaesthesia [None]

NARRATIVE: CASE EVENT DATE: 20230419
